FAERS Safety Report 8200659-7 (Version None)
Quarter: 2012Q1

REPORT INFORMATION
  Report Type: 
  Country: None (occurrence: None)
  Receive Date: 20120307
  Receipt Date: 20120213
  Transmission Date: 20120608
  Serious: Yes (Hospitalization)
  Sender: FDA-Public Use
  Company Number: 2012PROUSA01064

PATIENT
  Age: 77 Year
  Sex: Male

DRUGS (1)
  1. PROVENGE [Suspect]
     Indication: PROSTATE CANCER METASTATIC
     Dosage: 250 ML, SINGLE, INTRAVENOUS
     Route: 042
     Dates: start: 20120202, end: 20120202

REACTIONS (1)
  - BLOOD CREATININE INCREASED [None]
